FAERS Safety Report 16740553 (Version 1)
Quarter: 2019Q4

REPORT INFORMATION
  Report Type: Spontaneous
  Country: US (occurrence: US)
  Receive Date: 20190824
  Receipt Date: 20190824
  Transmission Date: 20200122
  Serious: Yes (Disabling)
  Sender: FDA-Public Use
  Company Number: None

PATIENT
  Age: 66 Year
  Sex: Female
  Weight: 104.4 kg

DRUGS (14)
  1. METOPROLOL. [Concomitant]
     Active Substance: METOPROLOL
  2. NEXIUM [Suspect]
     Active Substance: ESOMEPRAZOLE MAGNESIUM
     Indication: GASTROOESOPHAGEAL REFLUX DISEASE
     Dosage: ?          QUANTITY:1 TABLET(S);?
     Route: 048
     Dates: start: 20010901, end: 20190701
  3. BABY ASA [Concomitant]
     Active Substance: ASPIRIN
  4. DIOVAN [Concomitant]
     Active Substance: VALSARTAN
  5. NUVIGIL [Concomitant]
     Active Substance: ARMODAFINIL
  6. VIT. D [Concomitant]
  7. IBUPROFEN. [Suspect]
     Active Substance: IBUPROFEN
     Indication: AFTERBIRTH PAIN
     Dosage: ?          QUANTITY:3 TABLET(S);?
     Route: 048
     Dates: start: 19870531, end: 20190817
  8. CELEXA [Concomitant]
     Active Substance: CITALOPRAM HYDROBROMIDE
  9. METFORMIN [Concomitant]
     Active Substance: METFORMIN HYDROCHLORIDE
  10. NUTRILITE CARB BLOCKER [Concomitant]
  11. NUTRILITE GLUCOSE HEALTH [Concomitant]
  12. NUTRILITE COW-10 [Concomitant]
  13. NORVASC [Concomitant]
     Active Substance: AMLODIPINE BESYLATE
  14. NUTRILITE XX (MULTI-VITAMIN) [Concomitant]

REACTIONS (4)
  - Type 2 diabetes mellitus [None]
  - Blood creatinine increased [None]
  - Blood urea increased [None]
  - Glomerular filtration rate decreased [None]

NARRATIVE: CASE EVENT DATE: 20190822
